FAERS Safety Report 15189325 (Version 1)
Quarter: 2018Q3

REPORT INFORMATION
  Report Type: Spontaneous
  Country: JP (occurrence: JP)
  Receive Date: 20180724
  Receipt Date: 20180724
  Transmission Date: 20181010
  Serious: Yes (Hospitalization, Other)
  Sender: FDA-Public Use
  Company Number: JP-ELI_LILLY_AND_COMPANY-JP201807005706

PATIENT
  Age: 65 Year
  Sex: Female

DRUGS (4)
  1. FLUOROURACIL. [Concomitant]
     Active Substance: FLUOROURACIL
     Indication: COLON CANCER
     Dosage: UNK
  2. CALCIUM LEVOFOLINATE [Concomitant]
     Active Substance: LEVOLEUCOVORIN CALCIUM
     Indication: COLON CANCER
  3. CYRAMZA [Suspect]
     Active Substance: RAMUCIRUMAB
     Indication: COLON CANCER
     Dosage: UNK
     Route: 041
     Dates: start: 2018
  4. IRINOTECAN HYDROCHLORIDE. [Concomitant]
     Active Substance: IRINOTECAN HYDROCHLORIDE
     Indication: COLON CANCER

REACTIONS (4)
  - Stomatitis [Recovered/Resolved]
  - Platelet count decreased [Unknown]
  - Disseminated intravascular coagulation [Unknown]
  - Febrile neutropenia [Recovering/Resolving]

NARRATIVE: CASE EVENT DATE: 2018
